FAERS Safety Report 8765806 (Version 1)
Quarter: 2012Q4

REPORT INFORMATION
  Report Type: 
  Country: US (occurrence: US)
  Receive Date: 20120904
  Receipt Date: 20120904
  Transmission Date: 20130627
  Serious: No
  Sender: FDA-Public Use
  Company Number: US-PFIZER INC-2012215220

PATIENT
  Age: 66 Year
  Sex: Male
  Weight: 50.79 kg

DRUGS (8)
  1. CHANTIX [Suspect]
     Indication: SMOKING CESSATION THERAPY
     Dosage: 0.5 mg, daily
     Route: 048
     Dates: start: 20120827, end: 201208
  2. CHANTIX [Suspect]
     Dosage: 0.5 mg, 2x/day (morning and evening)
     Route: 048
     Dates: start: 201208
  3. SPIRIVA [Concomitant]
     Dosage: UNK, daily
  4. ADVAIR [Concomitant]
     Dosage: 250/50 mg, 2x/day
  5. PREDNISONE [Concomitant]
     Dosage: 20 mg, daily
  6. DALIRESP [Concomitant]
     Dosage: 500 ug, daily
  7. VENTOLIN [Concomitant]
     Dosage: UNK, every 4 hrs
  8. DOLONEX [Concomitant]
     Dosage: UNK

REACTIONS (1)
  - No adverse event [Unknown]
